FAERS Safety Report 8955438 (Version 2)
Quarter: 2015Q1

REPORT INFORMATION
  Report Type: Report from Study
  Country: FR (occurrence: FR)
  Receive Date: 20121207
  Receipt Date: 20150326
  Transmission Date: 20150721
  Serious: Yes (Death, Hospitalization)
  Sender: FDA-Public Use
  Company Number: FR-ROCHE-1165291

PATIENT
  Age: 79 Year
  Sex: Female

DRUGS (2)
  1. RITUXIMAB [Suspect]
     Active Substance: RITUXIMAB
     Indication: RHEUMATOID ARTHRITIS
     Dosage: D1
     Route: 041
     Dates: start: 20070725
  2. RITUXIMAB [Suspect]
     Active Substance: RITUXIMAB
     Dosage: D15
     Route: 041
     Dates: start: 20070809

REACTIONS (13)
  - Localised infection [Fatal]
  - Postmenopausal haemorrhage [Recovered/Resolved]
  - Urinary tract infection [Recovered/Resolved]
  - Cardiac failure [Fatal]
  - Autonomic nervous system imbalance [Unknown]
  - Thrombosis [Unknown]
  - Decreased appetite [Fatal]
  - Osteitis [Fatal]
  - Oesophagitis [Unknown]
  - Hypertension [Fatal]
  - Hyperglycaemia [Recovered/Resolved]
  - Peripheral ischaemia [Fatal]
  - Type 2 diabetes mellitus [Fatal]

NARRATIVE: CASE EVENT DATE: 20070725
